FAERS Safety Report 4576412-2 (Version None)
Quarter: 2005Q1

REPORT INFORMATION
  Report Type: 
  Country: None (occurrence: None)
  Receive Date: 20050207
  Receipt Date: 20050126
  Transmission Date: 20050727
  Serious: Yes (Disabling)
  Sender: FDA-Public Use
  Company Number: 2005AC00159

PATIENT
  Age: 65 Year
  Sex: Male

DRUGS (4)
  1. PULMICORT [Suspect]
     Indication: ASTHMA
     Dates: start: 20030101, end: 20040101
  2. BUDESONIDE + FORMOTEROL (SYMBICORT) [Suspect]
     Indication: ASTHMA
     Dates: start: 20040101, end: 20050117
  3. SINGULAIR [Suspect]
     Indication: ASTHMA
     Dates: end: 20050117
  4. SPIRIVA [Suspect]
     Dates: start: 20050117, end: 20050120

REACTIONS (3)
  - DYSPHAGIA [None]
  - DYSPHONIA [None]
  - INJURY ASPHYXIATION [None]
